FAERS Safety Report 7335059-5 (Version None)
Quarter: 2011Q1

REPORT INFORMATION
  Report Type: 
  Country: None (occurrence: None)
  Receive Date: 20110302
  Receipt Date: 20110302
  Transmission Date: 20110831
  Serious: No
  Sender: FDA-Public Use
  Company Number: None

PATIENT
  Sex: Female
  Weight: 74.3899 kg

DRUGS (1)
  1. CITALOPRAM HYDROBROMIDE [Suspect]
     Indication: NERVE INJURY
     Dosage: 20 MG ONE TABLET EVERY DAY
     Dates: start: 20100601, end: 20110223

REACTIONS (5)
  - PRURITUS [None]
  - SKIN EXFOLIATION [None]
  - UTERINE DISORDER [None]
  - TINNITUS [None]
  - HAEMORRHAGE [None]
